FAERS Safety Report 7425222-7 (Version None)
Quarter: 2011Q2

REPORT INFORMATION
  Report Type: 
  Country: None (occurrence: None)
  Receive Date: 20110413
  Receipt Date: 20110329
  Transmission Date: 20111010
  Serious: Yes (Hospitalization, Other)
  Sender: FDA-Public Use
  Company Number: JPI-P-014366

PATIENT
  Age: 40 Year
  Sex: Female
  Weight: 59.8748 kg

DRUGS (4)
  1. XYREM [Suspect]
     Indication: CATAPLEXY
     Dosage: ORAL; 7.5 GM (3.75 GM, 2 N 1 D), ORAL
     Route: 048
     Dates: start: 20070717, end: 20110306
  2. XYREM [Suspect]
     Indication: CATAPLEXY
     Dosage: ORAL; 7.5 GM (3.75 GM, 2 N 1 D), ORAL
     Route: 048
     Dates: start: 20110322
  3. IRON [Concomitant]
  4. ETONOGESTREL/ETHINYL ESTRADIOL [Concomitant]

REACTIONS (7)
  - INTESTINAL ISCHAEMIA [None]
  - WEIGHT DECREASED [None]
  - NAUSEA [None]
  - MIGRAINE [None]
  - POST PROCEDURAL COMPLICATION [None]
  - BRUXISM [None]
  - APPENDICECTOMY [None]
